FAERS Safety Report 18784714 (Version 1)
Quarter: 2021Q1

REPORT INFORMATION
  Report Type: Report from Study
  Country: None (occurrence: US)
  Receive Date: 20210126
  Receipt Date: 20210126
  Transmission Date: 20210419
  Serious: Yes (Hospitalization)
  Sender: FDA-Public Use
  Company Number: US-ABBVIE-20K-163-3249727-00

PATIENT
  Sex: Female

DRUGS (2)
  1. HUMIRA [Suspect]
     Active Substance: ADALIMUMAB
     Indication: PSORIATIC ARTHROPATHY
     Dosage: DAY 1
     Route: 058
     Dates: start: 20200105, end: 20200105
  2. HUMIRA [Suspect]
     Active Substance: ADALIMUMAB
     Indication: PSORIASIS
     Route: 058
     Dates: start: 20200120

REACTIONS (21)
  - Cellulitis [Unknown]
  - Polyarthritis [Not Recovered/Not Resolved]
  - Gout [Not Recovered/Not Resolved]
  - Arthralgia [Recovering/Resolving]
  - Joint swelling [Not Recovered/Not Resolved]
  - Gait disturbance [Not Recovered/Not Resolved]
  - Arthralgia [Not Recovered/Not Resolved]
  - Peripheral swelling [Unknown]
  - Diabetes mellitus [Unknown]
  - Nail discolouration [Unknown]
  - Arthralgia [Not Recovered/Not Resolved]
  - Grip strength decreased [Unknown]
  - Head injury [Unknown]
  - Pain in extremity [Unknown]
  - Dyspepsia [Unknown]
  - Arthropathy [Not Recovered/Not Resolved]
  - Pain in extremity [Not Recovered/Not Resolved]
  - Mobility decreased [Unknown]
  - Condition aggravated [Not Recovered/Not Resolved]
  - Headache [Unknown]
  - Therapeutic product effect decreased [Unknown]

NARRATIVE: CASE EVENT DATE: 2020
